FAERS Safety Report 4452517-1 (Version None)
Quarter: 2004Q3

REPORT INFORMATION
  Report Type: 
  Country: None (occurrence: None)
  Receive Date: 20040916
  Receipt Date: 20040907
  Transmission Date: 20050211
  Serious: Yes (Disabling)
  Sender: FDA-Public Use
  Company Number: 2004232434DE

PATIENT
  Age: 35 Year
  Sex: Female
  Weight: 40 kg

DRUGS (1)
  1. DEPO-CLINOVIR (MEDROXYPROGESTERONE ACETATE) SUSPENSION, STERILE, 150MG [Suspect]
     Dosage: FIRST INJECTION, INTRAMUSCULAR
     Route: 030

REACTIONS (5)
  - ASTHENIA [None]
  - CIRCULATORY COLLAPSE [None]
  - MEDICATION ERROR [None]
  - UNDERWEIGHT [None]
  - VOMITING [None]
